FAERS Safety Report 5562777-1 (Version None)
Quarter: 2007Q4

REPORT INFORMATION
  Report Type: 
  Country: None (occurrence: None)
  Receive Date: 20071212
  Receipt Date: 20071212
  Transmission Date: 20080405
  Serious: Yes (Life-Threatening, Hospitalization)
  Sender: FDA-Public Use
  Company Number: None

PATIENT
  Age: 89 Year
  Sex: Female
  Weight: 78 kg

DRUGS (2)
  1. TICLID [Suspect]
     Indication: CORONARY ARTERIAL STENT INSERTION
     Dosage: 250 MG BID PO
     Route: 048
     Dates: start: 20070901, end: 20071109
  2. TICLID [Suspect]
     Indication: DRUG ERUPTION
     Dosage: 250 MG BID PO
     Route: 048
     Dates: start: 20070901, end: 20071109

REACTIONS (6)
  - CONFUSIONAL STATE [None]
  - DYSPNOEA [None]
  - HYPOAESTHESIA [None]
  - PARAESTHESIA [None]
  - THROMBOCYTOPENIA [None]
  - VISION BLURRED [None]
